FAERS Safety Report 23534322 (Version 1)
Quarter: 2024Q1

REPORT INFORMATION
  Report Type: Report from Study
  Country: US (occurrence: US)
  Receive Date: 20240217
  Receipt Date: 20240217
  Transmission Date: 20240410
  Serious: Yes (Hospitalization, Other)
  Sender: FDA-Public Use
  Company Number: US-ABBVIE-5634004

PATIENT
  Sex: Female

DRUGS (1)
  1. HUMIRA [Suspect]
     Active Substance: ADALIMUMAB
     Indication: Rheumatoid arthritis
     Dosage: FORM STRENGTH WAS 40 MILLIGRAM?CITRATE FREE
     Route: 058
     Dates: start: 2005

REACTIONS (8)
  - Coma [Recovering/Resolving]
  - Musculoskeletal stiffness [Recovering/Resolving]
  - Anxiety [Unknown]
  - Chronic obstructive pulmonary disease [Recovering/Resolving]
  - Infection [Recovering/Resolving]
  - Rash papular [Recovering/Resolving]
  - Emotional distress [Unknown]
  - Nervous system disorder [Unknown]

NARRATIVE: CASE EVENT DATE: 20230101
